FAERS Safety Report 9997996 (Version 3)
Quarter: 2014Q2

REPORT INFORMATION
  Report Type: Spontaneous
  Country: US (occurrence: US)
  Receive Date: 20140311
  Receipt Date: 20140501
  Transmission Date: 20141212
  Serious: Yes (Death)
  Sender: FDA-Public Use
  Company Number: US-ABBVIE-14P-163-1210523-00

PATIENT
  Age: 63 Year
  Sex: Male
  Weight: 122.58 kg

DRUGS (5)
  1. ANDROGEL [Suspect]
     Indication: BLOOD TESTOSTERONE DECREASED
     Dosage: 4 PUMPS
     Route: 061
     Dates: start: 201111, end: 20120325
  2. METFORMIN [Concomitant]
     Indication: DIABETES MELLITUS
  3. GLIPIZIDE [Concomitant]
     Indication: DIABETES MELLITUS
  4. HYDROCHLOROTHIAZIDE [Concomitant]
     Indication: HYPERTENSION
  5. DIOVAN [Concomitant]
     Indication: HYPERTENSION

REACTIONS (5)
  - Cardiac arrest [Fatal]
  - Cardio-respiratory arrest [Fatal]
  - Pulmonary embolism [Fatal]
  - Dyspnoea [Fatal]
  - Treatment noncompliance [Unknown]
